FAERS Safety Report 12982549 (Version 1)
Quarter: 2016Q4

REPORT INFORMATION
  Report Type: Spontaneous
  Country: US (occurrence: US)
  Receive Date: 20161129
  Receipt Date: 20161129
  Transmission Date: 20170207
  Serious: Yes (Life-Threatening, Hospitalization, Other)
  Sender: FDA-Public Use
  Company Number: None

PATIENT
  Age: 19 Year
  Sex: Male
  Weight: 67.5 kg

DRUGS (1)
  1. ENTYVIO [Suspect]
     Active Substance: VEDOLIZUMAB
     Indication: COLITIS ULCERATIVE
     Dates: start: 20161115

REACTIONS (8)
  - Movement disorder [None]
  - Infusion related reaction [None]
  - Nasopharyngitis [None]
  - Dyspnoea [None]
  - Pain [None]
  - Limb discomfort [None]
  - Chest pain [None]
  - Chest discomfort [None]

NARRATIVE: CASE EVENT DATE: 20161115
